FAERS Safety Report 7711256-1 (Version None)
Quarter: 2011Q3

REPORT INFORMATION
  Report Type: 
  Country: None (occurrence: None)
  Receive Date: 20110826
  Receipt Date: 20110822
  Transmission Date: 20111222
  Serious: No
  Sender: FDA-Public Use
  Company Number: US-BIOGENIDEC-2011BI032065

PATIENT
  Age: 52 Year
  Sex: Female

DRUGS (4)
  1. AVONEX [Suspect]
     Indication: MULTIPLE SCLEROSIS
     Route: 030
     Dates: start: 20100101
  2. VALIUM [Concomitant]
     Indication: CONVULSION PROPHYLAXIS
  3. PHENTYNIL [Concomitant]
     Indication: PAIN
  4. ROXICODONE [Concomitant]
     Indication: PAIN

REACTIONS (2)
  - GAIT DISTURBANCE [None]
  - UPPER RESPIRATORY TRACT INFECTION [None]
